FAERS Safety Report 18749570 (Version 2)
Quarter: 2021Q1

REPORT INFORMATION
  Report Type: Spontaneous
  Country: BR (occurrence: BR)
  Receive Date: 20210117
  Receipt Date: 20210226
  Transmission Date: 20210419
  Serious: Yes (Hospitalization)
  Sender: FDA-Public Use
  Company Number: BR-ROCHE-2749327

PATIENT
  Age: 47 Year
  Sex: Female
  Weight: 65.55 kg

DRUGS (13)
  1. VINCRISTINE [Concomitant]
     Active Substance: VINCRISTINE
     Indication: NON-HODGKIN^S LYMPHOMA
     Dates: start: 20201223
  2. PARACETAMOL [Concomitant]
     Active Substance: ACETAMINOPHEN
     Route: 048
     Dates: start: 20201223, end: 20201223
  3. DEXAMETHASONE. [Concomitant]
     Active Substance: DEXAMETHASONE
     Dosage: DURATION: 10 MINUTES
     Route: 042
     Dates: start: 20201223, end: 20201223
  4. CYCLOPHOSPHAMIDE. [Concomitant]
     Active Substance: CYCLOPHOSPHAMIDE
  5. ONDANSETRON [Concomitant]
     Active Substance: ONDANSETRON
     Dosage: CYCLIC FREQUENCY
     Route: 048
     Dates: start: 20201222, end: 20201231
  6. DOXORUBICIN [Concomitant]
     Active Substance: DOXORUBICIN
     Indication: NON-HODGKIN^S LYMPHOMA
     Route: 042
     Dates: start: 20201223
  7. MORPHINE [Concomitant]
     Active Substance: MORPHINE
     Indication: NECK PAIN
     Dosage: DURATION: IN BOLUS
     Route: 042
     Dates: start: 20201223, end: 20201223
  8. ONDANSETRON [Concomitant]
     Active Substance: ONDANSETRON
     Route: 042
  9. RIXIMYO [Suspect]
     Active Substance: RITUXIMAB
     Indication: NON-HODGKIN^S LYMPHOMA
     Dosage: CYCLIC FREQUENCY
     Route: 042
     Dates: start: 20201223
  10. OMEPRAZOLE. [Concomitant]
     Active Substance: OMEPRAZOLE
     Route: 048
  11. MABTHERA [Suspect]
     Active Substance: RITUXIMAB
     Indication: NON-HODGKIN^S LYMPHOMA
     Dosage: CYCLIC FREQUENCY
     Route: 042
     Dates: start: 20201223
  12. CODEINE [Concomitant]
     Active Substance: CODEINE
     Route: 048
     Dates: start: 20201222, end: 20201231
  13. DIPYRONE [Concomitant]
     Active Substance: DIPYRONE
     Indication: NECK PAIN
     Dosage: DURATION: IN BOLUS
     Route: 042
     Dates: start: 20201223, end: 20201223

REACTIONS (9)
  - Papule [Recovered/Resolved]
  - Oxygen saturation decreased [Recovered/Resolved]
  - Tachycardia [Recovered/Resolved]
  - Dyspnoea [Recovered/Resolved]
  - Speech disorder [Recovered/Resolved]
  - Rash [Recovered/Resolved]
  - Laryngeal oedema [Recovered/Resolved]
  - Dysphagia [Unknown]
  - Pruritus [Recovered/Resolved]

NARRATIVE: CASE EVENT DATE: 20201223
